FAERS Safety Report 12481228 (Version 1)
Quarter: 2016Q2

REPORT INFORMATION
  Report Type: Spontaneous
  Country: GB (occurrence: GB)
  Receive Date: 20160620
  Receipt Date: 20160620
  Transmission Date: 20160815
  Serious: Yes (Other)
  Sender: FDA-Public Use
  Company Number: GB-NOVOPROD-495794

PATIENT
  Age: 49 Year
  Sex: Female
  Weight: 65.31 kg

DRUGS (1)
  1. VAGIFEM [Suspect]
     Active Substance: ESTRADIOL
     Indication: VULVOVAGINAL DRYNESS
     Dosage: 10 MG, UNK
     Route: 067
     Dates: start: 20160408, end: 20160524

REACTIONS (4)
  - Dyspnoea [Not Recovered/Not Resolved]
  - Constipation [Recovering/Resolving]
  - Abnormal weight gain [Not Recovered/Not Resolved]
  - Fluid retention [Not Recovered/Not Resolved]

NARRATIVE: CASE EVENT DATE: 20160408
